FAERS Safety Report 7292960-9 (Version None)
Quarter: 2011Q1

REPORT INFORMATION
  Report Type: 
  Country: None (occurrence: None)
  Receive Date: 20110209
  Receipt Date: 20110209
  Transmission Date: 20110831
  Serious: Yes (Other)
  Sender: FDA-Public Use
  Company Number: None

PATIENT
  Age: 54 Year
  Sex: Female
  Weight: 56.6996 kg

DRUGS (2)
  1. CYMBALTA [Suspect]
     Indication: DEPRESSION
     Dosage: 1 PER DAY PO
     Route: 048
     Dates: start: 20101115, end: 20110131
  2. CYMBALTA [Suspect]
     Indication: ANXIETY
     Dosage: 1 PER DAY PO
     Route: 048
     Dates: start: 20101115, end: 20110131

REACTIONS (8)
  - MIGRAINE [None]
  - HEADACHE [None]
  - ABDOMINAL PAIN UPPER [None]
  - PARAESTHESIA [None]
  - NAUSEA [None]
  - DRUG WITHDRAWAL SYNDROME [None]
  - TREMOR [None]
  - DRUG INEFFECTIVE [None]
